FAERS Safety Report 18256607 (Version 1)
Quarter: 2020Q3

REPORT INFORMATION
  Report Type: Spontaneous
  Country: US (occurrence: US)
  Receive Date: 20200911
  Receipt Date: 20200911
  Transmission Date: 20201103
  Serious: Yes (Life-Threatening)
  Sender: FDA-Public Use
  Company Number: US-MYLANLABS-2020M1076248

PATIENT
  Sex: Male
  Weight: 79 kg

DRUGS (3)
  1. WIXELA INHUB [Suspect]
     Active Substance: FLUTICASONE PROPIONATE\SALMETEROL XINAFOATE
     Indication: WHEEZING
     Dosage: 1, 2X DAILY (250/50)
     Route: 055
     Dates: start: 20200824, end: 20200825
  2. LEVOTHYROXINE. [Concomitant]
     Active Substance: LEVOTHYROXINE
  3. OMEPRAZOLE. [Concomitant]
     Active Substance: OMEPRAZOLE

REACTIONS (4)
  - Pruritus [Unknown]
  - Urticaria [Unknown]
  - Wheezing [Unknown]
  - Choking sensation [Unknown]
